FAERS Safety Report 8047322-3 (Version None)
Quarter: 2012Q1

REPORT INFORMATION
  Report Type: 
  Country: None (occurrence: None)
  Receive Date: 20120116
  Receipt Date: 20120105
  Transmission Date: 20120608
  Serious: Yes (Hospitalization)
  Sender: FDA-Public Use
  Company Number: FR-NOVOPROD-342666

PATIENT
  Age: 58 Year
  Sex: Female
  Weight: 104 kg

DRUGS (3)
  1. METFORMIN HYDROCHLORIDE [Concomitant]
  2. LIRAGLUTIDE FLEXPEN [Suspect]
     Indication: TYPE 2 DIABETES MELLITUS
     Dosage: 0.6 MG, QD
     Route: 058
     Dates: start: 20110302
  3. LIRAGLUTIDE FLEXPEN [Suspect]
     Dosage: 1.2 MG, QD
     Route: 058
     Dates: start: 20110916, end: 20111216

REACTIONS (2)
  - HICCUPS [None]
  - NAUSEA [None]
